FAERS Safety Report 9349615 (Version 2)
Quarter: 2014Q1

REPORT INFORMATION
  Report Type: Spontaneous
  Country: US (occurrence: US)
  Receive Date: 20130614
  Receipt Date: 20140210
  Transmission Date: 20141002
  Serious: Yes (Death, Hospitalization, Other)
  Sender: FDA-Public Use
  Company Number: US-B.I. PHARMACEUTICALS,INC./RIDGEFIELD-2013-BI-16574BP

PATIENT
  Age: 62 Year
  Sex: Female
  Weight: 77.11 kg

DRUGS (20)
  1. PRADAXA [Suspect]
     Indication: CEREBROVASCULAR ACCIDENT PROPHYLAXIS
     Dosage: 300 MG
     Route: 048
     Dates: start: 20110908, end: 20111227
  2. PRADAXA [Suspect]
     Indication: THROMBOSIS PROPHYLAXIS
  3. PRADAXA [Suspect]
     Indication: ATRIAL FIBRILLATION
  4. BIOTIN [Concomitant]
     Dosage: 360 MG
     Route: 048
  5. HAIR ESSENTIALS [Concomitant]
     Dosage: 1650 MG
     Route: 048
  6. IODINE KELP [Concomitant]
     Dosage: 155 MCG
     Route: 048
  7. COZAAR [Concomitant]
     Dosage: 100 MG
     Route: 048
  8. TOPROL XL [Concomitant]
     Dosage: 25 MG
     Route: 048
  9. OMEPRAZOLE [Concomitant]
     Dosage: 80 MG
     Route: 048
  10. DELTASONE [Concomitant]
     Dosage: 40 MG
     Route: 048
  11. VITAMIN A [Concomitant]
     Dosage: 5555 U
     Route: 048
  12. VITAMIN E [Concomitant]
     Dosage: 30 U
     Route: 048
  13. ZINC [Concomitant]
     Dosage: 30 MG
     Route: 048
  14. RENOVA [Concomitant]
     Route: 061
  15. LEVOTHYROXINE [Concomitant]
     Dosage: 75 MCG
     Route: 048
  16. VITAMIN B12 [Concomitant]
     Dosage: 500 MCG
     Route: 048
  17. TIKOSYN [Concomitant]
     Dosage: 1000 MCG
     Route: 048
  18. VANIQA [Concomitant]
     Route: 061
  19. CO-ENZYME Q10 [Concomitant]
     Dosage: 30 MG
     Route: 048
  20. VITAMIN D [Concomitant]
     Dosage: 1000 U
     Route: 048

REACTIONS (6)
  - Myocardial infarction [Fatal]
  - Gastrointestinal haemorrhage [Recovered/Resolved]
  - Anaemia [Unknown]
  - Renal failure acute [Recovered/Resolved]
  - Endocarditis bacterial [Unknown]
  - Atrial fibrillation [Unknown]
